FAERS Safety Report 7183745-2 (Version None)
Quarter: 2010Q4

REPORT INFORMATION
  Report Type: 
  Country: None (occurrence: None)
  Receive Date: 20101220
  Receipt Date: 20101220
  Transmission Date: 20110411
  Serious: Yes (Hospitalization)
  Sender: FDA-Public Use
  Company Number: None

PATIENT
  Age: 78 Year
  Sex: Male
  Weight: 68.2 kg

DRUGS (12)
  1. LISINOPRIL AND HYDROCHLOROTHIAZIDE [Suspect]
     Indication: HYPERTENSION
     Dosage: 20/12.5 BID PO  CHRONIC
     Route: 048
  2. QUINAPRIL [Suspect]
     Indication: HYPERTENSION
     Dosage: 20MG DAILY PO  CHRONIC
     Route: 048
  3. IRON SULFATETHIAMIN COMPOUND TAB [Concomitant]
  4. VIT B12 [Concomitant]
  5. WARFARIN SODIUM [Concomitant]
  6. DIGOXIN [Concomitant]
  7. CALCIUM + VIT D [Concomitant]
  8. DILTIAZEM [Concomitant]
  9. SYNTHROID [Concomitant]
  10. ALEVE [Concomitant]
  11. MELOXICAM [Concomitant]
  12. PENICILLIN V [Concomitant]

REACTIONS (3)
  - HYPOVOLAEMIA [None]
  - RENAL FAILURE ACUTE [None]
  - RENAL TUBULAR NECROSIS [None]
